FAERS Safety Report 14187583 (Version 1)
Quarter: 2017Q4

REPORT INFORMATION
  Report Type: Spontaneous
  Country: US (occurrence: US)
  Receive Date: 20171114
  Receipt Date: 20171114
  Transmission Date: 20180321
  Serious: No
  Sender: FDA-Public Use
  Company Number: US-BAUSCH-BL-2017-017850

PATIENT
  Sex: Female

DRUGS (1)
  1. RETIN-A [Suspect]
     Active Substance: TRETINOIN
     Indication: PIGMENTATION DISORDER
     Route: 065
     Dates: start: 20170519

REACTIONS (4)
  - Skin disorder [Unknown]
  - Dry skin [Unknown]
  - Drug ineffective [Unknown]
  - Seborrhoea [Unknown]

NARRATIVE: CASE EVENT DATE: 201705
